FAERS Safety Report 7499552-7 (Version None)
Quarter: 2011Q2

REPORT INFORMATION
  Report Type: 
  Country: None (occurrence: None)
  Receive Date: 20110524
  Receipt Date: 20110519
  Transmission Date: 20111010
  Serious: Yes (Life-Threatening, Hospitalization)
  Sender: FDA-Public Use
  Company Number: RU-ASTRAZENECA-2011SE30702

PATIENT
  Age: 65 Year
  Sex: Female
  Weight: 105 kg

DRUGS (3)
  1. SYMBICORT [Suspect]
     Indication: ASTHMA
     Dosage: 160/4.5 MG BID
     Route: 055
     Dates: start: 20100501
  2. SYMBICORT [Suspect]
     Dosage: 160/4.5 MG ONCE DAILY
     Route: 055
  3. ENALOPRIL [Concomitant]
     Indication: HYPERTENSION

REACTIONS (1)
  - THROMBOPHLEBITIS [None]
